FAERS Safety Report 17550680 (Version 2)
Quarter: 2020Q1

REPORT INFORMATION
  Report Type: Report from Study
  Country: None (occurrence: US)
  Receive Date: 20200317
  Receipt Date: 20200320
  Transmission Date: 20200409
  Serious: Yes (Hospitalization)
  Sender: FDA-Public Use
  Company Number: US-ABBVIE-20K-163-3319368-00

PATIENT
  Age: 65 Year
  Sex: Male

DRUGS (21)
  1. IMBRUVICA [Suspect]
     Active Substance: IBRUTINIB
     Indication: PRODUCT USED FOR UNKNOWN INDICATION
     Dosage: 28 D 24 CYCLES
     Route: 048
     Dates: start: 20190531, end: 20200211
  2. VENCLEXTA [Suspect]
     Active Substance: VENETOCLAX
     Dosage: WEEK 4, TAKE WITH MEAL AND WATER AT THE SAME TIME
     Route: 048
     Dates: start: 2020, end: 2020
  3. KLOR-CON [Concomitant]
     Active Substance: POTASSIUM CHLORIDE
     Indication: PRODUCT USED FOR UNKNOWN INDICATION
     Dosage: M20 M EQ 2 PO FOR 3 DAYS, THEN 1 PO QD
     Route: 048
     Dates: start: 20200212
  4. VENCLEXTA [Suspect]
     Active Substance: VENETOCLAX
     Dosage: TAKE 8 TABLETS DAILY
     Route: 048
     Dates: start: 20200228, end: 2020
  5. RITUXAN [Suspect]
     Active Substance: RITUXIMAB
     Indication: LYMPHADENOPATHY
     Dosage: 375MG/M2 Q WK.4 THEN Q OTHER CYCLE 6 CYCLES, LAST TREATMENT DATE: 20-NOV-2018
     Route: 042
     Dates: start: 20171226
  6. ALLOPURINOL. [Concomitant]
     Active Substance: ALLOPURINOL
     Indication: PRODUCT USED FOR UNKNOWN INDICATION
     Route: 048
     Dates: start: 20200107
  7. REVLIMID [Suspect]
     Active Substance: LENALIDOMIDE
     Indication: MANTLE CELL LYMPHOMA
     Dosage: 20 MG DAILY D1-21 C1 TO 25 MG DAILY Q 28 D 12, LAST TREATMENT DATE: 21-NOV-2018
     Route: 048
     Dates: start: 20171226, end: 20181120
  8. RITUXAN [Suspect]
     Active Substance: RITUXIMAB
     Dosage: DAY 1
     Route: 042
     Dates: start: 20200309
  9. BENDAMUSTINE [Concomitant]
     Active Substance: BENDAMUSTINE
     Indication: PRODUCT USED FOR UNKNOWN INDICATION
     Dosage: 70MG/M2 Q2
     Route: 042
     Dates: start: 20200310
  10. ADRIAMYCIN [Concomitant]
     Active Substance: DOXORUBICIN HYDROCHLORIDE
     Indication: PRODUCT USED FOR UNKNOWN INDICATION
     Dosage: IVP Q 21D 6 CYCLES
     Route: 042
     Dates: start: 20190501, end: 20190515
  11. VENCLEXTA [Suspect]
     Active Substance: VENETOCLAX
     Indication: B-CELL SMALL LYMPHOCYTIC LYMPHOMA
     Dosage: WEEK 2
     Route: 048
     Dates: start: 2020, end: 2020
  12. VENCLEXTA [Suspect]
     Active Substance: VENETOCLAX
     Dosage: WEEK 3
     Route: 048
     Dates: start: 2020, end: 2020
  13. CYTARABINE. [Concomitant]
     Active Substance: CYTARABINE
     Indication: PRODUCT USED FOR UNKNOWN INDICATION
     Dosage: 800MG/M2 Q 28D 6 CYCLES, ONGOING:YES
     Route: 042
     Dates: start: 20200310
  14. EXCEDRIN [Concomitant]
     Active Substance: ACETAMINOPHEN\ASPIRIN\CAFFEINE
     Indication: PRODUCT USED FOR UNKNOWN INDICATION
     Dosage: 250 MG-65MG
     Dates: start: 20171212
  15. OMEPRAZOLE. [Concomitant]
     Active Substance: OMEPRAZOLE
     Indication: PRODUCT USED FOR UNKNOWN INDICATION
     Route: 048
     Dates: start: 20190823
  16. VENCLEXTA [Suspect]
     Active Substance: VENETOCLAX
     Dosage: RAMP UP 20 TO 400 MG WEEKLY FOR 12 CYCLES LAST TREATMENT DATE: 13-MAR-2020
     Route: 048
     Dates: start: 20200114
  17. ALKA-SELTZER [Concomitant]
     Active Substance: ANHYDROUS CITRIC ACID\ASPIRIN\SODIUM BICARBONATE
     Indication: DYSPEPSIA
     Dosage: 1940MG-1000MG PRN
     Dates: start: 20171212
  18. OXYCODONE AND ACETAMINOPHEN [Concomitant]
     Active Substance: ACETAMINOPHEN\OXYCODONE HYDROCHLORIDE
     Indication: PAIN
     Dosage: 5MG-325 MG PRN
     Route: 048
     Dates: start: 20191115
  19. TYLENOL [Concomitant]
     Active Substance: ACETAMINOPHEN
     Indication: PRODUCT USED FOR UNKNOWN INDICATION
     Dosage: PRN
     Dates: start: 20181018
  20. VENCLEXTA [Suspect]
     Active Substance: VENETOCLAX
     Indication: CHRONIC LYMPHOCYTIC LEUKAEMIA
     Dosage: TAKE 20MG ONCE DAILY WEEK 1
     Route: 048
     Dates: start: 20200107, end: 2020
  21. ALKA-SELTZER PLUS NOS [Concomitant]
     Active Substance: ACETAMINOPHEN\ASPIRIN\CHLORPHENIRAMINE MALEATE\DEXTROMETHORPHAN HYDROBROMIDE\DIPHENHYDRAMINE HYDROCHLORIDE\DOXYLAMINE SUCCINATE\PHENYLEPHRINE BITARTRATE\PHENYLEPHRINE HYDROCHLORIDE
     Indication: NASOPHARYNGITIS
     Dosage: 2 MG- 7.8 MG-325MG PRN
     Dates: start: 20180116

REACTIONS (8)
  - Dehydration [Recovered/Resolved]
  - Nausea [Recovered/Resolved]
  - Vomiting [Recovered/Resolved]
  - Tachycardia [Unknown]
  - Dyspnoea [Unknown]
  - Pancytopenia [Unknown]
  - Chronic lymphocytic leukaemia [Unknown]
  - Rash [Unknown]

NARRATIVE: CASE EVENT DATE: 201905
